FAERS Safety Report 20613956 (Version 1)
Quarter: 2022Q1

REPORT INFORMATION
  Report Type: Spontaneous
  Country: US (occurrence: US)
  Receive Date: 20220319
  Receipt Date: 20220319
  Transmission Date: 20220424
  Serious: Yes (Death, Other)
  Sender: FDA-Public Use
  Company Number: US-ALVOGEN-2022-ALVOGEN-119027

PATIENT
  Age: 55 Year
  Sex: Female

DRUGS (6)
  1. OXYCODONE [Suspect]
     Active Substance: OXYCODONE
     Indication: Suicide attempt
     Dosage: INGESTION PLUS UNKNOWN
  2. LITHIUM [Suspect]
     Active Substance: LITHIUM
     Indication: Suicide attempt
     Dosage: INGESTION PLUS UNKNOWN
  3. OXYMORPHONE [Suspect]
     Active Substance: OXYMORPHONE
     Indication: Suicide attempt
     Dosage: INGESTION PLUS UNKNOWN
  4. QUETIAPINE [Suspect]
     Active Substance: QUETIAPINE
     Indication: Suicide attempt
     Dosage: INGESTION PLUS UNKNOWN
  5. MORPHINE [Suspect]
     Active Substance: MORPHINE
     Indication: Suicide attempt
     Dosage: INGESTION PLUS UNKNOWN
  6. CYCLOBENZAPRINE [Suspect]
     Active Substance: CYCLOBENZAPRINE
     Indication: Suicide attempt
     Dosage: INGESTION PLUS UNKNOWN

REACTIONS (1)
  - Completed suicide [Fatal]
